FAERS Safety Report 7832005-2 (Version None)
Quarter: 2011Q4

REPORT INFORMATION
  Report Type: 
  Country: None (occurrence: None)
  Receive Date: 20111021
  Receipt Date: 20111014
  Transmission Date: 20120403
  Serious: Yes (Other)
  Sender: FDA-Public Use
  Company Number: US-ASTRAZENECA-2011SE62265

PATIENT
  Sex: Female

DRUGS (2)
  1. NEXIUM [Suspect]
     Route: 048
  2. PRILOSEC [Suspect]
     Route: 048

REACTIONS (9)
  - BURNING SENSATION [None]
  - NERVE ROOT COMPRESSION [None]
  - CONTUSION [None]
  - WRONG DRUG ADMINISTERED [None]
  - DRUG INEFFECTIVE [None]
  - SPINAL CORD COMPRESSION [None]
  - ANAL CANCER [None]
  - NEOPLASM MALIGNANT [None]
  - THROAT IRRITATION [None]
